FAERS Safety Report 26143662 (Version 1)
Quarter: 2025Q4

REPORT INFORMATION
  Report Type: Spontaneous
  Country: US (occurrence: US)
  Receive Date: 20251211
  Receipt Date: 20251211
  Transmission Date: 20260117
  Serious: No
  Sender: PHARMACOSMOS A/S
  Company Number: US-NEBO-714277

PATIENT
  Age: 20 Year
  Sex: Female

DRUGS (2)
  1. MONOFERRIC [Suspect]
     Active Substance: FERRIC DERISOMALTOSE
     Indication: Iron deficiency anaemia
     Dates: start: 20251110, end: 20251110
  2. MONOFERRIC [Suspect]
     Active Substance: FERRIC DERISOMALTOSE
     Indication: Iron deficiency anaemia
     Dates: start: 20251110, end: 20251110

REACTIONS (4)
  - Maternal exposure during pregnancy [Recovered/Resolved]
  - Hypoaesthesia [Unknown]
  - Hypotension [Recovering/Resolving]
  - Hyperhidrosis [Unknown]
